FAERS Safety Report 9627127 (Version 1)
Quarter: 2013Q4

REPORT INFORMATION
  Report Type: Spontaneous
  Country: US (occurrence: None)
  Receive Date: 20131011
  Receipt Date: 20131011
  Transmission Date: 20140711
  Serious: Yes (Hospitalization)
  Sender: FDA-Public Use
  Company Number: 2013EXPUS00143

PATIENT
  Age: 50 Year
  Sex: Male

DRUGS (1)
  1. EXPAREL [Suspect]
     Indication: POSTOPERATIVE ANALGESIA
     Dosage: 1X, INFILTRATION
     Dates: start: 20131003, end: 20131003

REACTIONS (4)
  - Rhabdomyolysis [None]
  - Pain [None]
  - Body temperature increased [None]
  - White blood cell count increased [None]
